FAERS Safety Report 18348903 (Version 1)
Quarter: 2020Q4

REPORT INFORMATION
  Report Type: Spontaneous
  Country: CA (occurrence: CA)
  Receive Date: 20201006
  Receipt Date: 20201006
  Transmission Date: 20210114
  Serious: Yes (Other)
  Sender: FDA-Public Use
  Company Number: CA-ACCORD-204098

PATIENT
  Age: 68 Year
  Sex: Female

DRUGS (12)
  1. PACLITAXEL/PACLITAXEL LIPOSOME [Suspect]
     Active Substance: PACLITAXEL
     Indication: PRODUCT USED FOR UNKNOWN INDICATION
     Route: 065
  2. DEXAMETHASONE. [Concomitant]
     Active Substance: DEXAMETHASONE
  3. FENTANYL. [Concomitant]
     Active Substance: FENTANYL
  4. HEPARIN-FRACTION [Concomitant]
     Active Substance: HEPARIN SODIUM
  5. OLANZAPINE. [Concomitant]
     Active Substance: OLANZAPINE
  6. HYDROMORPHONE/HYDROMORPHONE HYDROCHLORIDE [Concomitant]
     Active Substance: HYDROMORPHONE
  7. ONDANSETRON [Concomitant]
     Active Substance: ONDANSETRON
  8. ZANTAC [Concomitant]
     Active Substance: RANITIDINE HYDROCHLORIDE
  9. DIPHENHYDRAMINE. [Concomitant]
     Active Substance: DIPHENHYDRAMINE
  10. PANTOPRAZOLE [Concomitant]
     Active Substance: PANTOPRAZOLE
  11. SENOKOT [Concomitant]
     Active Substance: SENNOSIDES
  12. LAX-A-DAY [Concomitant]
     Active Substance: POLYETHYLENE GLYCOL 3350

REACTIONS (1)
  - Infusion related reaction [Recovered/Resolved]
